FAERS Safety Report 5742042-X (Version None)
Quarter: 2008Q2

REPORT INFORMATION
  Report Type: 
  Country: None (occurrence: None)
  Receive Date: 20080519
  Receipt Date: 20080508
  Transmission Date: 20081010
  Serious: Yes (Death, Hospitalization)
  Sender: FDA-Public Use
  Company Number: ZA-MERCK-0805USA01921

PATIENT
  Age: 60 Year
  Sex: Female

DRUGS (1)
  1. STROMECTOL [Suspect]
     Indication: ONCHOCERCIASIS
     Route: 048
     Dates: start: 20071125, end: 20071125

REACTIONS (6)
  - COMA [None]
  - ENCEPHALOPATHY [None]
  - MALARIA [None]
  - POISONING [None]
  - SEPSIS [None]
  - URINARY INCONTINENCE [None]
